FAERS Safety Report 12157018 (Version 2)
Quarter: 2016Q1

REPORT INFORMATION
  Report Type: Report from Study
  Country: NL (occurrence: NL)
  Receive Date: 20160307
  Receipt Date: 20160315
  Transmission Date: 20160526
  Serious: Yes (Hospitalization)
  Sender: FDA-Public Use
  Company Number: NL-AMGEN-NLDSL2016015712

PATIENT
  Age: 66 Year
  Sex: Female

DRUGS (1)
  1. ARANESP [Suspect]
     Active Substance: DARBEPOETIN ALFA
     Indication: NEPHROGENIC ANAEMIA
     Dosage: 100 MCG/1.40 ML, QWK
     Route: 058

REACTIONS (3)
  - Intentional product misuse [Unknown]
  - Fluid retention [Unknown]
  - Palpitations [Unknown]

NARRATIVE: CASE EVENT DATE: 20160208
